FAERS Safety Report 11891619 (Version 1)
Quarter: 2016Q1

REPORT INFORMATION
  Report Type: Spontaneous
  Country: FR (occurrence: FR)
  Receive Date: 20160106
  Receipt Date: 20160106
  Transmission Date: 20160526
  Serious: Yes (Congenital Anomaly)
  Sender: FDA-Public Use
  Company Number: FR-BIOMARINAP-FR-2015-108563

PATIENT
  Age: 1 Day
  Sex: Male
  Weight: 2.76 kg

DRUGS (1)
  1. ALDURAZYME [Suspect]
     Active Substance: LARONIDASE
     Indication: MATERNAL EXPOSURE TIMING UNSPECIFIED
     Dosage: UNK
     Route: 064

REACTIONS (1)
  - Pyloric stenosis [Recovered/Resolved with Sequelae]

NARRATIVE: CASE EVENT DATE: 20150924
